FAERS Safety Report 22079735 (Version 2)
Quarter: 2023Q1

REPORT INFORMATION
  Report Type: Spontaneous
  Country: FR (occurrence: FR)
  Receive Date: 20230309
  Receipt Date: 20230315
  Transmission Date: 20230418
  Serious: Yes (Death, Other)
  Sender: FDA-Public Use
  Company Number: FR-BAYER-201040454GPV

PATIENT
  Age: 63 Year
  Sex: Female
  Weight: 95 kg

DRUGS (8)
  1. GADOBUTROL [Suspect]
     Active Substance: GADOBUTROL
     Indication: Magnetic resonance imaging
     Dosage: 15 ML (DAILY DOSE), ONCE, INTRAVENOUS
     Route: 042
     Dates: start: 20100723, end: 20100723
  2. GADOBUTROL [Suspect]
     Active Substance: GADOBUTROL
     Indication: Magnetic resonance imaging
     Route: 042
     Dates: start: 20100723, end: 20100723
  3. JANUMET [Concomitant]
     Active Substance: METFORMIN HYDROCHLORIDE\SITAGLIPTIN PHOSPHATE
     Dosage: LONG TERM TREATMENT
     Route: 048
  4. JANUMET [Concomitant]
     Active Substance: METFORMIN HYDROCHLORIDE\SITAGLIPTIN PHOSPHATE
     Dosage: LONG TERM TREATMENT
     Route: 048
  5. INDAPAMIDE [Concomitant]
     Active Substance: INDAPAMIDE
     Dosage: LONG TERM TREATMENT
     Route: 048
  6. SECTRAL [Concomitant]
     Active Substance: ACEBUTOLOL HYDROCHLORIDE
     Dosage: LONG TERM TREATMENT
     Route: 048
  7. RAMIPRIL [Concomitant]
     Active Substance: RAMIPRIL
     Dosage: LONG TERM TREATMENT
     Route: 048
  8. RAMIPRIL [Concomitant]
     Active Substance: RAMIPRIL
     Dosage: LONG TERM TREATMENT
     Route: 048

REACTIONS (8)
  - Cardio-respiratory arrest [Fatal]
  - Malaise [Fatal]
  - Respiratory distress [Fatal]
  - Hypercapnia [Fatal]
  - Acidosis [Fatal]
  - Loss of consciousness [Fatal]
  - Pulmonary oedema [Fatal]
  - Increased viscosity of bronchial secretion [Fatal]

NARRATIVE: CASE EVENT DATE: 20100723
